FAERS Safety Report 4643234-3 (Version None)
Quarter: 2005Q2

REPORT INFORMATION
  Report Type: 
  Country: None (occurrence: None)
  Receive Date: 20050421
  Receipt Date: 20050408
  Transmission Date: 20051028
  Serious: Yes (Hospitalization, Other)
  Sender: FDA-Public Use
  Company Number: 2005056799

PATIENT
  Sex: Female
  Weight: 63.5036 kg

DRUGS (1)
  1. DILANTIN [Suspect]
     Indication: GRAND MAL CONVULSION
     Dosage: 600 MG (100 MG, 3 IN 1 D), ORAL
     Route: 048
     Dates: start: 19630101

REACTIONS (3)
  - BRAIN NEOPLASM [None]
  - DRUG INEFFECTIVE [None]
  - SOMNOLENCE [None]
